FAERS Safety Report 11162094 (Version 1)
Quarter: 2015Q2

REPORT INFORMATION
  Report Type: Spontaneous
  Country: US (occurrence: US)
  Receive Date: 20150604
  Receipt Date: 20150604
  Transmission Date: 20150821
  Serious: No
  Sender: FDA-Public Use
  Company Number: US-SA-2014SA122732

PATIENT
  Sex: Male

DRUGS (2)
  1. NOVOLOG [Concomitant]
     Active Substance: INSULIN ASPART
  2. LANTUS [Suspect]
     Active Substance: INSULIN GLARGINE
     Indication: DIABETES MELLITUS
     Route: 065

REACTIONS (4)
  - Glycosylated haemoglobin increased [Unknown]
  - Drug ineffective [Unknown]
  - Blood glucose increased [Unknown]
  - Hypersomnia [Unknown]
